FAERS Safety Report 5579993-5 (Version None)
Quarter: 2007Q4

REPORT INFORMATION
  Report Type: 
  Country: None (occurrence: None)
  Receive Date: 20071227
  Receipt Date: 20071227
  Transmission Date: 20080405
  Serious: Yes (Death)
  Sender: FDA-Public Use
  Company Number: None

PATIENT
  Age: 55 Year
  Sex: Female

DRUGS (2)
  1. CYMBALTA [Suspect]
     Indication: DEPRESSION
     Dosage: DAILY
     Dates: start: 20070601, end: 20070901
  2. FENTANYL [Suspect]
     Indication: PAIN
     Dosage: 100 MG
     Dates: start: 20070917, end: 20070918

REACTIONS (1)
  - ACCIDENTAL DEATH [None]
